FAERS Safety Report 6765199-0 (Version None)
Quarter: 2010Q2

REPORT INFORMATION
  Report Type: 
  Country: None (occurrence: None)
  Receive Date: 20100610
  Receipt Date: 20100610
  Transmission Date: 20101027
  Serious: No
  Sender: FDA-Public Use
  Company Number: None

PATIENT
  Age: 4 Month
  Sex: Male
  Weight: 7.7111 kg

DRUGS (1)
  1. AZITHROMYCIN 100M / 5ML BARR [Suspect]
     Indication: OTITIS MEDIA
     Dosage: 3.25 ML FIRST DOSE PO; 1.75ML ONE DAILY FOR 4 DA PO
     Route: 048
     Dates: start: 20100606, end: 20100608

REACTIONS (2)
  - CRYING [None]
  - VOMITING PROJECTILE [None]
